FAERS Safety Report 16114825 (Version 4)
Quarter: 2020Q4

REPORT INFORMATION
  Report Type: Spontaneous
  Country: US (occurrence: US)
  Receive Date: 20190325
  Receipt Date: 20201030
  Transmission Date: 20210113
  Serious: Yes (Hospitalization, Other)
  Sender: FDA-Public Use
  Company Number: US-ASTRAZENECA-2019SE45119

PATIENT
  Age: 21150 Day
  Sex: Female

DRUGS (83)
  1. NEXIUM [Suspect]
     Active Substance: ESOMEPRAZOLE MAGNESIUM
     Indication: GASTROOESOPHAGEAL REFLUX DISEASE
     Route: 048
     Dates: start: 200610, end: 201202
  2. CANDESARTAN. [Concomitant]
     Active Substance: CANDESARTAN
     Indication: HYPERTENSION
     Dates: start: 200709
  3. PROPOFOL. [Concomitant]
     Active Substance: PROPOFOL
  4. VIGAMOX [Concomitant]
     Active Substance: MOXIFLOXACIN HYDROCHLORIDE
  5. MOXIFLOXACIN. [Concomitant]
     Active Substance: MOXIFLOXACIN
  6. VENOFER [Concomitant]
     Active Substance: IRON SUCROSE
     Route: 048
     Dates: start: 20191203
  7. PROMETHAZINE [Concomitant]
     Active Substance: PROMETHAZINE HYDROCHLORIDE
  8. METHYLPREDNISOLONE. [Concomitant]
     Active Substance: METHYLPREDNISOLONE
  9. SODIUM POLYSTYRENE SULFONATE. [Concomitant]
     Active Substance: SODIUM POLYSTYRENE SULFONATE
  10. NEXIUM [Suspect]
     Active Substance: ESOMEPRAZOLE MAGNESIUM
     Indication: GASTROOESOPHAGEAL REFLUX DISEASE
     Route: 048
     Dates: start: 20080102
  11. METOPROLOL TARTRATE. [Concomitant]
     Active Substance: METOPROLOL TARTRATE
     Indication: HYPERTENSION
  12. HYDRALAZINE [Concomitant]
     Active Substance: HYDRALAZINE HYDROCHLORIDE
  13. ALBUTEROL. [Concomitant]
     Active Substance: ALBUTEROL
  14. TAMIFLU [Concomitant]
     Active Substance: OSELTAMIVIR PHOSPHATE
  15. SINGULAIR [Concomitant]
     Active Substance: MONTELUKAST SODIUM
  16. ATACAND [Concomitant]
     Active Substance: CANDESARTAN CILEXETIL
     Route: 048
     Dates: start: 20091118
  17. DUONEB [Concomitant]
     Active Substance: ALBUTEROL SULFATE\IPRATROPIUM BROMIDE
  18. AZITHROMYCIN ANHYDROUS. [Concomitant]
     Active Substance: AZITHROMYCIN ANHYDROUS
  19. SENNA [Concomitant]
     Active Substance: SENNA LEAF\SENNOSIDES\SENNOSIDES A AND B
     Dosage: 8.6 MG/ 50MG
     Route: 048
     Dates: start: 20130307
  20. METRONIDAZOLE. [Concomitant]
     Active Substance: METRONIDAZOLE
     Indication: INFECTION
     Dates: start: 200709
  21. ASPIRIN. [Concomitant]
     Active Substance: ASPIRIN
  22. VITAMIN D [Concomitant]
     Active Substance: VITAMIN D NOS
  23. ATROVENT [Concomitant]
     Active Substance: IPRATROPIUM BROMIDE
  24. MIRCERA [Concomitant]
     Active Substance: METHOXY POLYETHYLENE GLYCOL-EPOETIN BETA
  25. NEXIUM [Suspect]
     Active Substance: ESOMEPRAZOLE MAGNESIUM
     Indication: GASTROOESOPHAGEAL REFLUX DISEASE
     Route: 048
     Dates: start: 20080805
  26. NEXIUM [Suspect]
     Active Substance: ESOMEPRAZOLE MAGNESIUM
     Indication: GASTROOESOPHAGEAL REFLUX DISEASE
     Route: 048
     Dates: start: 20101110
  27. OMEPRAZOLE. [Concomitant]
     Active Substance: OMEPRAZOLE
     Route: 048
     Dates: start: 20191203
  28. TRIAMCINOLONE [Concomitant]
     Active Substance: TRIAMCINOLONE
     Dates: start: 201010
  29. FISH OIL [Concomitant]
     Active Substance: FISH OIL
  30. EPOETIN [Concomitant]
     Active Substance: ERYTHROPOIETIN
  31. GABAPENTIN. [Concomitant]
     Active Substance: GABAPENTIN
  32. TIZANIDINE. [Concomitant]
     Active Substance: TIZANIDINE
  33. HYDROCODONE BITARTRATE AND ACETAMINOPHEN [Concomitant]
     Active Substance: ACETAMINOPHEN\HYDROCODONE BITARTRATE
     Dosage: 5-325
     Route: 048
     Dates: start: 20111030
  34. FUROSEMIDE. [Concomitant]
     Active Substance: FUROSEMIDE
     Route: 048
     Dates: start: 20100416
  35. NEXIUM [Suspect]
     Active Substance: ESOMEPRAZOLE MAGNESIUM
     Indication: GASTROOESOPHAGEAL REFLUX DISEASE
     Route: 048
     Dates: start: 20071116
  36. VIOKASE [Concomitant]
     Active Substance: PANCRELIPASE
  37. AMLODIPINE [Concomitant]
     Active Substance: AMLODIPINE BESYLATE
  38. LORATADINE-PSEUDOEPHEDRINE [Concomitant]
  39. SENNA S [Concomitant]
     Active Substance: DOCUSATE SODIUM\SENNA LEAF
     Indication: CONSTIPATION
     Dates: start: 201303
  40. HYDROCHLOROTHIAZIDE. [Concomitant]
     Active Substance: HYDROCHLOROTHIAZIDE
     Indication: HYPERTENSION
     Dates: start: 200707
  41. IMDUR [Concomitant]
     Active Substance: ISOSORBIDE MONONITRATE
  42. LIDOCAINE. [Concomitant]
     Active Substance: LIDOCAINE
  43. SODIUM CHLORIDE. [Concomitant]
     Active Substance: SODIUM CHLORIDE
  44. PREDNISOLONE. [Concomitant]
     Active Substance: PREDNISOLONE
  45. POLYMYXIN [Concomitant]
     Active Substance: POLYMYXIN
  46. NEXIUM [Suspect]
     Active Substance: ESOMEPRAZOLE MAGNESIUM
     Indication: GASTROOESOPHAGEAL REFLUX DISEASE
     Route: 048
     Dates: start: 20070730
  47. NEXIUM [Suspect]
     Active Substance: ESOMEPRAZOLE MAGNESIUM
     Indication: GASTROOESOPHAGEAL REFLUX DISEASE
     Route: 048
     Dates: start: 20121006
  48. ADVAIR HFA [Concomitant]
     Active Substance: FLUTICASONE PROPIONATE\SALMETEROL XINAFOATE
  49. SULFAMETHOXAZOLE/TRIMETHOPRIM [Concomitant]
     Active Substance: SULFAMETHOXAZOLE\TRIMETHOPRIM
     Indication: INFECTION
     Dates: start: 200707
  50. CARVEDILOL. [Concomitant]
     Active Substance: CARVEDILOL
  51. LOSARTAN. [Concomitant]
     Active Substance: LOSARTAN
  52. FAMOTIDINE. [Concomitant]
     Active Substance: FAMOTIDINE
  53. ONDANSETRON [Concomitant]
     Active Substance: ONDANSETRON
  54. IBUPROFEN. [Concomitant]
     Active Substance: IBUPROFEN
  55. CYCLOBENZAPR [Concomitant]
     Active Substance: CYCLOBENZAPRINE
  56. FLUTICASONE. [Concomitant]
     Active Substance: FLUTICASONE
  57. DUREZOL [Concomitant]
     Active Substance: DIFLUPREDNATE
  58. CLONIDINE. [Concomitant]
     Active Substance: CLONIDINE
     Route: 048
     Dates: start: 20191203
  59. ACETAMINOPHEN. [Concomitant]
     Active Substance: ACETAMINOPHEN
     Route: 048
     Dates: start: 20191203
  60. HEPARIN [Concomitant]
     Active Substance: HEPARIN SODIUM
  61. VITAMIN B12 [Concomitant]
     Active Substance: CYANOCOBALAMIN
  62. CARBOXYMETHYLCELLULOSE [Concomitant]
     Active Substance: CARBOXYMETHYLCELLULOSE
  63. NEPHRO VITE RX [Concomitant]
     Active Substance: ASCORBIC ACID\BIOTIN\CALCIUM PANTOTHENATE\CYANOCOBALAMIN\FOLIC ACID\NIACINAMIDE\PYRIDOXINE HYDROCHLORIDE\RIBOFLAVIN\THIAMINE MONONITRATE
  64. PANTOPRAZOLE [Concomitant]
     Active Substance: PANTOPRAZOLE
     Dosage: 1 VIAL IV
  65. TRAMADOL. [Concomitant]
     Active Substance: TRAMADOL
  66. OXYCODONE/ACETAMINOPHEN [Concomitant]
     Active Substance: ACETAMINOPHEN\OXYCODONE HYDROCHLORIDE
     Indication: PAIN
     Dates: start: 201008
  67. BRIMONIDINE [Concomitant]
     Active Substance: BRIMONIDINE TARTRATE
  68. FOLIC ACID. [Concomitant]
     Active Substance: FOLIC ACID
  69. NEXIUM [Suspect]
     Active Substance: ESOMEPRAZOLE MAGNESIUM
     Indication: GASTROOESOPHAGEAL REFLUX DISEASE
     Route: 048
     Dates: start: 20100301
  70. SIMVASTATIN. [Concomitant]
     Active Substance: SIMVASTATIN
  71. AZELASTINE. [Concomitant]
     Active Substance: AZELASTINE HYDROCHLORIDE
  72. LANTHANUM [Concomitant]
     Active Substance: LANTHANUM
  73. POLYVINYL ALCOHOL [Concomitant]
     Active Substance: POLYVINYL ALCOHOL
  74. LEVAQUIN [Concomitant]
     Active Substance: LEVOFLOXACIN
  75. FENTANYL. [Concomitant]
     Active Substance: FENTANYL
  76. FERROUS SULFATE. [Concomitant]
     Active Substance: FERROUS SULFATE
  77. DOXYCYCLINE HYCLATE. [Concomitant]
     Active Substance: DOXYCYCLINE HYCLATE
  78. ERYTHROMYCIN. [Concomitant]
     Active Substance: ERYTHROMYCIN
  79. OLOPATADINE. [Concomitant]
     Active Substance: OLOPATADINE
  80. SYMBICORT [Concomitant]
     Active Substance: BUDESONIDE\FORMOTEROL FUMARATE DIHYDRATE
  81. ASACOL [Concomitant]
     Active Substance: MESALAMINE
  82. DIALYVITE [Concomitant]
     Active Substance: ASCORBIC ACID\BIOTIN\CALCIUM PANTOTHENATE\COBALAMIN\FOLIC ACID\NIACINAMIDE\PYRIDOXINE HYDROCHLORIDE\RIBOFLAVIN\THIAMINE MONONITRATE
  83. NASOCORT [Concomitant]
     Active Substance: BUDESONIDE
     Dosage: 120 SPRAY
     Route: 065
     Dates: start: 20101018

REACTIONS (7)
  - Chronic kidney disease-mineral and bone disorder [Unknown]
  - Renal failure [Unknown]
  - Chronic kidney disease [Not Recovered/Not Resolved]
  - Hyperparathyroidism secondary [Unknown]
  - Acute kidney injury [Unknown]
  - End stage renal disease [Unknown]
  - Nephrogenic anaemia [Unknown]

NARRATIVE: CASE EVENT DATE: 20100302
